FAERS Safety Report 21405778 (Version 2)
Quarter: 2022Q4

REPORT INFORMATION
  Report Type: Report from Study
  Country: US (occurrence: US)
  Receive Date: 20221004
  Receipt Date: 20221025
  Transmission Date: 20230113
  Serious: No
  Sender: FDA-Public Use
  Company Number: US-ABBVIE-4133222

PATIENT
  Sex: Male

DRUGS (1)
  1. VENCLEXTA [Suspect]
     Active Substance: VENETOCLAX
     Indication: Squamous cell carcinoma of skin
     Dosage: FORM STRENGTH WAS 400 MILLIGRAM.
     Route: 048
     Dates: start: 20220131

REACTIONS (1)
  - Off label use [Unknown]
